FAERS Safety Report 19452413 (Version 1)
Quarter: 2021Q2

REPORT INFORMATION
  Report Type: Spontaneous
  Country: US (occurrence: US)
  Receive Date: 20210623
  Receipt Date: 20210623
  Transmission Date: 20210717
  Serious: No
  Sender: FDA-Public Use
  Company Number: US-BAYER-2021-162816

PATIENT
  Age: 80 Year
  Sex: Female

DRUGS (2)
  1. MIRALAX [Suspect]
     Active Substance: POLYETHYLENE GLYCOL 3350
     Dosage: I TAKE IT 3 TIMES A DAY FOR MANY DAYS DOSE
     Route: 048
  2. ENEMA [SODIUM CHLORIDE] [Concomitant]

REACTIONS (1)
  - Extra dose administered [Unknown]
